FAERS Safety Report 4385992-1 (Version None)
Quarter: 2004Q2

REPORT INFORMATION
  Report Type: 
  Country: None (occurrence: None)
  Receive Date: 20040628
  Receipt Date: 20040622
  Transmission Date: 20050107
  Serious: Yes (Hospitalization)
  Sender: FDA-Public Use
  Company Number: NL-MERCK-0406NLD00018

PATIENT
  Age: 47 Year
  Sex: Male

DRUGS (4)
  1. ALLOPURINOL [Concomitant]
     Route: 065
     Dates: start: 20031102
  2. FLUTICASONE PROPIONATE AND SALMETEROL XINAFOATE [Concomitant]
     Indication: ASTHMA
     Route: 055
  3. SINGULAIR [Suspect]
     Indication: ASTHMA
     Route: 048
     Dates: start: 20031029, end: 20040529
  4. RANITIDINE HYDROCHLORIDE [Concomitant]
     Route: 048
     Dates: start: 20031007

REACTIONS (1)
  - GASTROINTESTINAL HAEMORRHAGE [None]
